FAERS Safety Report 7593312-4 (Version None)
Quarter: 2011Q3

REPORT INFORMATION
  Report Type: 
  Country: None (occurrence: None)
  Receive Date: 20110706
  Receipt Date: 20091114
  Transmission Date: 20111222
  Serious: Yes (Hospitalization, Other)
  Sender: FDA-Public Use
  Company Number: US-BAYER-200939577NA

PATIENT
  Age: 63 Year
  Sex: Male
  Weight: 90.703 kg

DRUGS (6)
  1. TRASYLOL [Suspect]
     Indication: CORONARY ARTERY BYPASS
     Dosage: UNK TEST DOSE NOT SPECIFIED
     Route: 042
     Dates: start: 20020513, end: 20020513
  2. HEPARIN [Concomitant]
     Dosage: 1000/ML, 10ML INJECTION
     Route: 042
     Dates: start: 20020513, end: 20020513
  3. CONTRAST MEDIA [Concomitant]
     Indication: CATHETERISATION CARDIAC
     Dosage: UNK
     Dates: start: 20020510
  4. TRASYLOL [Suspect]
     Dosage: 25 ML/HR ONCE
     Route: 042
     Dates: start: 20020513, end: 20020513
  5. TRASYLOL [Suspect]
     Dosage: 100 ML ONCE LOADING DOSE
     Route: 042
     Dates: start: 20020513, end: 20020513
  6. ALBUMIN (HUMAN) [Concomitant]
     Dosage: 50 ML, ONCE
     Route: 042
     Dates: start: 20020513

REACTIONS (5)
  - RENAL FAILURE [None]
  - INJURY [None]
  - UNEVALUABLE EVENT [None]
  - PAIN [None]
  - RENAL FAILURE ACUTE [None]
